FAERS Safety Report 5333860-0 (Version None)
Quarter: 2007Q2

REPORT INFORMATION
  Report Type: 
  Country: None (occurrence: None)
  Receive Date: 20070524
  Receipt Date: 20070515
  Transmission Date: 20071010
  Serious: Yes (Other)
  Sender: FDA-Public Use
  Company Number: HQWYE275518MAY07

PATIENT
  Age: 40 Year
  Sex: Female

DRUGS (2)
  1. SIROLIMUS [Suspect]
     Indication: CHRONIC ALLOGRAFT NEPHROPATHY
     Route: 065
  2. AZATHIOPRINE [Concomitant]
     Indication: IMMUNOSUPPRESSION
     Dosage: NOT PROVIDED
     Route: 065

REACTIONS (1)
  - FOCAL GLOMERULOSCLEROSIS [None]
